FAERS Safety Report 6480694-X (Version None)
Quarter: 2009Q4

REPORT INFORMATION
  Report Type: 
  Country: None (occurrence: None)
  Receive Date: 20091208
  Receipt Date: 20090305
  Transmission Date: 20100525
  Serious: No
  Sender: FDA-Public Use
  Company Number: US-AMGEN-KDL336884

PATIENT
  Sex: Female

DRUGS (1)
  1. ENBREL [Suspect]
     Indication: RHEUMATOID ARTHRITIS
     Route: 058

REACTIONS (6)
  - ARTHRALGIA [None]
  - BRONCHITIS [None]
  - DYSPNOEA [None]
  - HYPOAESTHESIA [None]
  - INSOMNIA [None]
  - PNEUMONIA [None]
